FAERS Safety Report 10443291 (Version 1)
Quarter: 2014Q3

REPORT INFORMATION
  Report Type: Spontaneous
  Country: US (occurrence: US)
  Receive Date: 20140910
  Receipt Date: 20140910
  Transmission Date: 20150326
  Serious: Yes (Hospitalization)
  Sender: FDA-Public Use
  Company Number: US-AMGEN-USASP2014068506

PATIENT
  Age: 64 Year
  Sex: Female

DRUGS (5)
  1. LEVOTHYROXIN [Concomitant]
     Active Substance: LEVOTHYROXINE
     Dosage: UNK
  2. MULTIVITAMIN                       /00097801/ [Concomitant]
     Active Substance: VITAMINS
     Dosage: UNK
  3. ENBREL [Suspect]
     Active Substance: ETANERCEPT
     Indication: PRODUCT USED FOR UNKNOWN INDICATION
     Dosage: 50 MG, QWK
     Route: 058
  4. ACTIGALL [Concomitant]
     Active Substance: URSODIOL
     Dosage: UNK
  5. BUTRANS [Concomitant]
     Active Substance: BUPRENORPHINE
     Dosage: UNK

REACTIONS (2)
  - Food poisoning [Unknown]
  - Urinary tract infection [Unknown]
